FAERS Safety Report 25795082 (Version 1)
Quarter: 2025Q3

REPORT INFORMATION
  Report Type: Spontaneous
  Country: US (occurrence: US)
  Receive Date: 20250912
  Receipt Date: 20250912
  Transmission Date: 20251021
  Serious: Yes (Other)
  Sender: ACCORD
  Company Number: US-Accord-503730

PATIENT
  Age: 10 Month
  Sex: Female

DRUGS (3)
  1. VIGABATRIN [Suspect]
     Active Substance: VIGABATRIN
     Indication: Infantile spasms
  2. LACOSAMIDE [Concomitant]
     Active Substance: LACOSAMIDE
  3. KEPPRA [Concomitant]
     Active Substance: LEVETIRACETAM

REACTIONS (2)
  - Neurotoxicity [Recovering/Resolving]
  - Somnolence [Recovering/Resolving]
